FAERS Safety Report 10551566 (Version 1)
Quarter: 2014Q4

REPORT INFORMATION
  Report Type: Spontaneous
  Country: US (occurrence: None)
  Receive Date: 20141028
  Receipt Date: 20141028
  Transmission Date: 20150529
  Serious: Yes (Other)
  Sender: FDA-Public Use
  Company Number: None

PATIENT
  Age: 26 Year
  Sex: Female
  Weight: 76.4 kg

DRUGS (1)
  1. OLANZAPINE ODT [Suspect]
     Active Substance: OLANZAPINE
     Indication: PSYCHOTIC DISORDER
     Dosage: 10MG X 3 = 30 MG Q HS PO
     Route: 048
     Dates: start: 20140812, end: 20141017

REACTIONS (6)
  - Incoherent [None]
  - Treatment noncompliance [None]
  - Product substitution issue [None]
  - Psychotic disorder [None]
  - Exposure during pregnancy [None]
  - Thinking abnormal [None]

NARRATIVE: CASE EVENT DATE: 20141017
